FAERS Safety Report 7496887-9 (Version None)
Quarter: 2011Q2

REPORT INFORMATION
  Report Type: 
  Country: None (occurrence: None)
  Receive Date: 20110523
  Receipt Date: 20110513
  Transmission Date: 20111010
  Serious: Yes (Other)
  Sender: FDA-Public Use
  Company Number: US-ASTRAZENECA-2009UW06379

PATIENT
  Age: 78 Year
  Sex: Female

DRUGS (10)
  1. SUPPLEMENTS [Concomitant]
  2. RESTORIL [Concomitant]
  3. ATIVAN [Concomitant]
  4. TOPROL-XL [Suspect]
     Indication: HYPERTENSION
     Route: 048
     Dates: start: 20100101
  5. ASPIRIN [Concomitant]
  6. FIUROCET [Concomitant]
  7. TOPROL-XL [Suspect]
     Route: 048
  8. PERCOCET [Concomitant]
  9. TOPROL-XL [Suspect]
     Route: 048
  10. TOPROL-XL [Suspect]
     Route: 048

REACTIONS (8)
  - HYPERTENSION [None]
  - ANXIETY [None]
  - PALPITATIONS [None]
  - HEADACHE [None]
  - PAIN IN EXTREMITY [None]
  - TACHYCARDIA [None]
  - NIGHTMARE [None]
  - DRUG INEFFECTIVE [None]
